FAERS Safety Report 14265361 (Version 3)
Quarter: 2018Q1

REPORT INFORMATION
  Report Type: Spontaneous
  Country: DE (occurrence: DE)
  Receive Date: 20171208
  Receipt Date: 20180124
  Transmission Date: 20180508
  Serious: Yes (Other)
  Sender: FDA-Public Use
  Company Number: DE-TAKEDA-2017TEU005177

PATIENT
  Sex: Male

DRUGS (1)
  1. TACHOSIL [Suspect]
     Active Substance: FIBRINOGEN HUMAN\THROMBIN HUMAN
     Indication: SURGERY
     Dosage: UNK
     Route: 065
     Dates: start: 20171107, end: 20171107

REACTIONS (3)
  - Product quality issue [Unknown]
  - Suspected transmission of an infectious agent via product [Unknown]
  - HIV test positive [Unknown]

NARRATIVE: CASE EVENT DATE: 20171107
